FAERS Safety Report 13053896 (Version 4)
Quarter: 2017Q4

REPORT INFORMATION
  Report Type: Report from Study
  Country: PL (occurrence: PL)
  Receive Date: 20161222
  Receipt Date: 20171115
  Transmission Date: 20180320
  Serious: Yes (Hospitalization, Other)
  Sender: FDA-Public Use
  Company Number: PL-UCBSA-2016048030

PATIENT
  Age: 52 Year
  Sex: Male
  Weight: 82 kg

DRUGS (7)
  1. CERTOLIZUMAB PEGOL [Suspect]
     Active Substance: CERTOLIZUMAB PEGOL
     Dosage: 400 MG, EV 4 WEEKS
     Route: 058
     Dates: start: 20160405, end: 20161115
  2. CERTOLIZUMAB PEGOL [Suspect]
     Active Substance: CERTOLIZUMAB PEGOL
     Indication: PSORIASIS
     Dosage: 200 MG, EV 2 WEEKS(QOW)
     Route: 058
     Dates: start: 20151216
  3. OMEPRAZOLE. [Concomitant]
     Active Substance: OMEPRAZOLE
     Indication: PRODUCT USED FOR UNKNOWN INDICATION
     Dosage: 20 MG, ONCE DAILY (QD)
     Route: 048
     Dates: start: 20121117
  4. AXTIL [Concomitant]
     Indication: HYPERTENSION
     Dosage: 5 MG, ONCE DAILY (QD)
     Route: 048
  5. SIMVAGEN [Concomitant]
     Indication: LIPIDS ABNORMAL
     Dosage: 20 MG, ONCE DAILY (QD)
     Route: 048
     Dates: start: 20121117
  6. OMEPRAZOLE. [Concomitant]
     Active Substance: OMEPRAZOLE
     Indication: GASTROOESOPHAGEAL REFLUX DISEASE
  7. CERTOLIZUMAB PEGOL [Suspect]
     Active Substance: CERTOLIZUMAB PEGOL
     Dosage: 200 MG, EV 2 WEEKS(QOW)
     Route: 058
     Dates: start: 20151216, end: 20160404

REACTIONS (1)
  - Urinary bladder haemorrhage [Recovered/Resolved]

NARRATIVE: CASE EVENT DATE: 20161124
